FAERS Safety Report 15049913 (Version 2)
Quarter: 2019Q3

REPORT INFORMATION
  Report Type: Report from Study
  Country: NL (occurrence: NL)
  Receive Date: 20180622
  Receipt Date: 20190730
  Transmission Date: 20191004
  Serious: Yes (Other)
  Sender: FDA-Public Use
  Company Number: NL-CELGENEUS-NLD-20170505919

PATIENT
  Age: 82 Year
  Sex: Female

DRUGS (6)
  1. REVLIMID [Suspect]
     Active Substance: LENALIDOMIDE
     Indication: B-CELL LYMPHOMA
     Route: 048
     Dates: start: 20140618
  2. RITUXIMAB. [Suspect]
     Active Substance: RITUXIMAB
     Dosage: 615 MG
     Route: 048
     Dates: end: 20170213
  3. REVLIMID [Suspect]
     Active Substance: LENALIDOMIDE
     Dosage: DAYS 3 20
     Route: 048
     Dates: start: 20141005
  4. REVLIMID [Suspect]
     Active Substance: LENALIDOMIDE
     Route: 048
     Dates: start: 20140521, end: 20141015
  5. RITUXIMAB. [Suspect]
     Active Substance: RITUXIMAB
     Dosage: 615 MG
     Route: 048
     Dates: start: 20150115, end: 20151103
  6. RITUXIMAB. [Suspect]
     Active Substance: RITUXIMAB
     Indication: B-CELL LYMPHOMA
     Dosage: 615 MG
     Route: 048
     Dates: start: 20150416, end: 20160804

REACTIONS (2)
  - Neuroendocrine carcinoma of the skin [Recovered/Resolved]
  - Basal cell carcinoma [Recovered/Resolved]

NARRATIVE: CASE EVENT DATE: 20160926
